FAERS Safety Report 6644982-6 (Version None)
Quarter: 2010Q1

REPORT INFORMATION
  Report Type: 
  Country: None (occurrence: None)
  Receive Date: 20100322
  Receipt Date: 20100311
  Transmission Date: 20100710
  Serious: Yes (Hospitalization)
  Sender: FDA-Public Use
  Company Number: PHHY2010CH14542

PATIENT
  Age: 21 Year
  Sex: Male

DRUGS (4)
  1. RITALIN [Suspect]
     Indication: DISTURBANCE IN ATTENTION
     Dosage: 5 MG DAILY
     Dates: start: 20100216
  2. RITALIN [Suspect]
     Dosage: 10 MG DAILY
     Dates: start: 20100217
  3. RITALIN [Suspect]
     Dosage: 15 MG DAILY
     Dates: start: 20100218
  4. RITALIN [Suspect]
     Dosage: 20 MG DAILY
     Dates: start: 20100219

REACTIONS (5)
  - AGGRESSION [None]
  - COMA SCALE ABNORMAL [None]
  - LOSS OF CONSCIOUSNESS [None]
  - MENTAL DISORDER [None]
  - PSYCHOMOTOR HYPERACTIVITY [None]
